FAERS Safety Report 14675442 (Version 2)
Quarter: 2019Q4

REPORT INFORMATION
  Report Type: Spontaneous
  Country: GB (occurrence: GB)
  Receive Date: 20180323
  Receipt Date: 20191119
  Transmission Date: 20200122
  Serious: Yes (Disabling)
  Sender: FDA-Public Use
  Company Number: GB-TEVA-2018-GB-874417

PATIENT
  Age: 63 Year
  Sex: Male
  Weight: 102 kg

DRUGS (13)
  1. INDAPAMIDE. [Suspect]
     Active Substance: INDAPAMIDE
     Route: 065
     Dates: start: 20171201
  2. EZETIMIBE. [Concomitant]
     Active Substance: EZETIMIBE
     Dosage: 1 DOSAGE FORMS DAILY; INSTEAD OF STATIN
     Route: 065
     Dates: start: 20180111
  3. LOSARTAN. [Concomitant]
     Active Substance: LOSARTAN
     Dosage: 1 DOSAGE FORMS DAILY;
     Route: 065
     Dates: start: 20171201
  4. RANITIDINE. [Concomitant]
     Active Substance: RANITIDINE
     Dosage: 2 DOSAGE FORMS DAILY;
     Route: 065
     Dates: start: 20180111
  5. DOXAZOSIN [Concomitant]
     Active Substance: DOXAZOSIN MESYLATE
     Dosage: 2 DOSAGE FORMS DAILY;
     Route: 065
     Dates: start: 20171201
  6. LACIDIPINE [Concomitant]
     Active Substance: LACIDIPINE
     Dosage: 1 DOSAGE FORMS DAILY;
     Route: 065
     Dates: start: 20180104
  7. LANSOPRAZOLE. [Concomitant]
     Active Substance: LANSOPRAZOLE
     Dosage: 1 DOSAGE FORMS DAILY;
     Route: 065
     Dates: start: 20171211, end: 20171228
  8. CLOPIDOGREL [Concomitant]
     Active Substance: CLOPIDOGREL BISULFATE
     Dosage: 1 DOSAGE FORMS DAILY;
     Route: 065
     Dates: start: 20171201
  9. GAVISCON ADVANCE [Concomitant]
     Active Substance: POTASSIUM BICARBONATE\SODIUM ALGINATE
     Dosage: 5ML OR 10ML
     Route: 065
     Dates: start: 20180105
  10. BISOPROLOL [Concomitant]
     Active Substance: BISOPROLOL
     Dosage: 1 DOSAGE FORMS DAILY;
     Route: 065
     Dates: start: 20171221
  11. ATENOLOL. [Concomitant]
     Active Substance: ATENOLOL
     Dosage: 1 DOSAGE FORMS DAILY; EACH MORNING
     Route: 065
     Dates: start: 20171201, end: 20171205
  12. ATORVASTATIN [Concomitant]
     Active Substance: ATORVASTATIN
     Indication: BLOOD CHOLESTEROL
     Dosage: 1 DOSAGE FORMS DAILY; AT NIGHT
     Route: 065
     Dates: start: 20171212, end: 20180109
  13. AMLODIPINE [Concomitant]
     Active Substance: AMLODIPINE BESYLATE
     Dosage: 2 DOSAGE FORMS DAILY;
     Route: 065
     Dates: start: 20171201, end: 20180104

REACTIONS (3)
  - Anxiety [Recovered/Resolved]
  - Hyperphagia [Recovered/Resolved]
  - Hot flush [Recovered/Resolved]
